FAERS Safety Report 7789946-4 (Version None)
Quarter: 2011Q3

REPORT INFORMATION
  Report Type: 
  Country: None (occurrence: None)
  Receive Date: 20110930
  Receipt Date: 20100920
  Transmission Date: 20111222
  Serious: No
  Sender: FDA-Public Use
  Company Number: US-ASTRAZENECA-2010SE42464

PATIENT
  Age: 57 Year
  Sex: Female
  Weight: 81.6 kg

DRUGS (1)
  1. ARIMIDEX [Suspect]
     Indication: ENDOMETRIOSIS
     Route: 048

REACTIONS (2)
  - ANXIETY [None]
  - DEPRESSION [None]
